FAERS Safety Report 12700418 (Version 1)
Quarter: 2016Q3

REPORT INFORMATION
  Report Type: Spontaneous
  Country: US (occurrence: US)
  Receive Date: 20160830
  Receipt Date: 20160830
  Transmission Date: 20161109
  Serious: No
  Sender: FDA-Public Use
  Company Number: US-SA-2015SA219084

PATIENT
  Age: 45 Year
  Sex: Male
  Weight: 94.12 kg

DRUGS (28)
  1. NORMAL SALINE [Concomitant]
     Active Substance: SODIUM CHLORIDE
     Indication: MEDICATION DILUTION
     Dosage: AS DIRECTED
     Route: 042
     Dates: start: 20150521
  2. L-M-X [Concomitant]
     Indication: PREMEDICATION
     Dosage: AS DIRECTED
     Dates: start: 20150521
  3. DEMADEX [Concomitant]
     Active Substance: TORSEMIDE
     Route: 048
     Dates: start: 20141219
  4. CRESTOR [Concomitant]
     Active Substance: ROSUVASTATIN CALCIUM
     Dosage: AS DIRECTED
     Dates: start: 20100908
  5. OXYCONTIN [Concomitant]
     Active Substance: OXYCODONE HYDROCHLORIDE
     Dosage: AS DIRECTED
     Dates: start: 20100908
  6. DIAZEPAM. [Concomitant]
     Active Substance: DIAZEPAM
     Dosage: AS DIRECTED
     Dates: start: 20150908
  7. VALIUM [Concomitant]
     Active Substance: DIAZEPAM
     Dosage: AS DIRECTED
     Dates: start: 20100507
  8. TYLENOL EXTRA STRENGTH [Concomitant]
     Active Substance: ACETAMINOPHEN
     Dosage: AS DIRECTED
     Dates: start: 20101122
  9. LIDOCAINE/PRILOCAINE [Concomitant]
     Dosage: AS DIRECTED
     Dates: start: 20100908
  10. NORMAL SALINE [Concomitant]
     Active Substance: SODIUM CHLORIDE
     Indication: FLUSHING
     Dosage: AS DIRECTED
     Route: 042
     Dates: start: 20150521
  11. MUPIROCIN. [Concomitant]
     Active Substance: MUPIROCIN
     Dosage: AS DIRECTED
     Dates: start: 20111014
  12. VITAMIN D [Concomitant]
     Active Substance: CHOLECALCIFEROL
     Dosage: AS DIRECTED DOSE:2000 UNIT(S)
     Dates: start: 20100907
  13. VITAMIN D [Concomitant]
     Active Substance: CHOLECALCIFEROL
     Dosage: AS DIRECTED DOSE:1000 UNIT(S)
     Dates: start: 20100908
  14. FABRAZYME [Suspect]
     Active Substance: AGALSIDASE BETA
     Indication: LIPIDOSIS
     Route: 042
     Dates: start: 20120614
  15. FABRAZYME [Suspect]
     Active Substance: AGALSIDASE BETA
     Indication: FABRY^S DISEASE
     Route: 042
     Dates: start: 20120614
  16. DIPHENHYDRAMINE HYDROCHLORIDE. [Concomitant]
     Active Substance: DIPHENHYDRAMINE HYDROCHLORIDE
     Indication: ANAPHYLACTIC REACTION
     Dosage: DOSE:50 MILLIGRAM(S)/MILLILITRE
     Route: 042
     Dates: start: 20150521
  17. EPIPEN [Concomitant]
     Active Substance: EPINEPHRINE
     Indication: ANAPHYLACTIC REACTION
     Dosage: AS DIRECTED
     Route: 030
     Dates: start: 20150521
  18. SOLU-MEDROL [Concomitant]
     Active Substance: METHYLPREDNISOLONE SODIUM SUCCINATE
     Indication: ANAPHYLACTIC REACTION
     Dosage: DOSE:40 MILLIGRAM(S)/MILLILITRE
     Route: 042
     Dates: start: 20150521
  19. SPIRONOLACTONE. [Concomitant]
     Active Substance: SPIRONOLACTONE
     Dosage: AS DIRECTED
     Dates: start: 20100908
  20. FABRAZYME [Suspect]
     Active Substance: AGALSIDASE BETA
     Indication: LIPIDOSIS
     Route: 042
     Dates: start: 20120614
  21. LISINOPRIL. [Concomitant]
     Active Substance: LISINOPRIL
     Dosage: AS NEEDED
     Dates: start: 20100907
  22. AMOXICILLIN. [Concomitant]
     Active Substance: AMOXICILLIN
     Dosage: AS DIRECTED
     Dates: start: 20100507
  23. FABRAZYME [Suspect]
     Active Substance: AGALSIDASE BETA
     Indication: FABRY^S DISEASE
     Route: 042
     Dates: start: 20120614
  24. AZITHROMYCIN ANHYDROUS. [Concomitant]
     Active Substance: AZITHROMYCIN ANHYDROUS
     Dosage: AS DIRECTED
     Route: 048
     Dates: start: 20141219
  25. ASPIRIN. [Concomitant]
     Active Substance: ASPIRIN
     Dosage: AS DIRECTED
     Dates: start: 20120530
  26. CRESTOR [Concomitant]
     Active Substance: ROSUVASTATIN CALCIUM
     Dosage: AS DIRECTED
     Dates: start: 20100507
  27. OXYCODONE HYDROCHLORIDE. [Concomitant]
     Active Substance: OXYCODONE HYDROCHLORIDE
     Dosage: AS DIRECTED
     Dates: start: 20100908
  28. CALCIUM [Concomitant]
     Active Substance: CALCIUM
     Dosage: AS DIRECTED
     Dates: start: 20100908

REACTIONS (2)
  - Nasopharyngitis [Unknown]
  - Medication error [Unknown]
